FAERS Safety Report 9571262 (Version 1)
Quarter: 2013Q4

REPORT INFORMATION
  Report Type: Spontaneous
  Country: GB (occurrence: GB)
  Receive Date: 20131001
  Receipt Date: 20131001
  Transmission Date: 20140711
  Serious: Yes (Other)
  Sender: FDA-Public Use
  Company Number: GB-ASTELLAS-2013EU008189

PATIENT
  Sex: Female

DRUGS (1)
  1. BETMIGA [Suspect]
     Indication: HYPERTONIC BLADDER
     Dosage: UNK
     Route: 065

REACTIONS (2)
  - Drug ineffective [Unknown]
  - Dyspnoea [Recovered/Resolved]
